FAERS Safety Report 4707399-7 (Version None)
Quarter: 2005Q3

REPORT INFORMATION
  Report Type: 
  Country: None (occurrence: None)
  Receive Date: 20050706
  Receipt Date: 20050624
  Transmission Date: 20060218
  Serious: Yes (Hospitalization, Disabling)
  Sender: FDA-Public Use
  Company Number: PHBS2005CH09130

PATIENT
  Age: 79 Year
  Sex: Male

DRUGS (11)
  1. ZOMETA [Suspect]
     Indication: METASTASES TO BONE
     Dosage: 4 MG, QMO
     Route: 042
     Dates: start: 20030621, end: 20050501
  2. ERBITUX [Suspect]
     Indication: NEOPLASM MALIGNANT
     Route: 065
     Dates: start: 20040101, end: 20050501
  3. CAMPTO [Suspect]
     Indication: NEOPLASM MALIGNANT
     Route: 065
     Dates: start: 20040101, end: 20050501
  4. MST [Concomitant]
     Indication: PAIN
     Route: 065
  5. DURAGESIC-100 [Concomitant]
     Indication: PAIN
     Route: 065
  6. TRANSIPEG [Concomitant]
     Route: 065
  7. NEXIUM [Concomitant]
     Route: 065
  8. TIATRAL [Concomitant]
     Dosage: 100 MG/D
     Route: 065
  9. KENDURAL [Concomitant]
     Indication: ANAEMIA
     Route: 065
  10. BENEXOL B12 [Concomitant]
     Indication: ANAEMIA
     Route: 065
  11. ARANESP [Concomitant]
     Route: 065

REACTIONS (3)
  - ASEPTIC NECROSIS BONE [None]
  - BACTERIAL INFECTION [None]
  - JAW OPERATION [None]
